FAERS Safety Report 6350737-2 (Version None)
Quarter: 2009Q3

REPORT INFORMATION
  Report Type: 
  Country: None (occurrence: None)
  Receive Date: 20090911
  Receipt Date: 20090622
  Transmission Date: 20100115
  Serious: No
  Sender: FDA-Public Use
  Company Number: US-ABBOTT-07P-163-0369987-00

PATIENT
  Sex: Female
  Weight: 93.1 kg

DRUGS (6)
  1. HUMIRA [Suspect]
     Indication: PSORIASIS
     Route: 058
     Dates: start: 20070529, end: 20070529
  2. BYETTA [Concomitant]
     Indication: DIABETES MELLITUS
     Route: 058
  3. ZOCOR [Concomitant]
     Indication: BLOOD CHOLESTEROL
     Route: 048
  4. TELMISARTAN [Concomitant]
     Indication: RENAL DISORDER
     Route: 048
  5. TELMISARTAN [Concomitant]
     Indication: PROPHYLAXIS
  6. ASPIRIN [Concomitant]
     Indication: PROPHYLAXIS
     Route: 048

REACTIONS (1)
  - INCORRECT DOSE ADMINISTERED [None]
